FAERS Safety Report 7167680-1 (Version None)
Quarter: 2010Q4

REPORT INFORMATION
  Report Type: 
  Country: None (occurrence: None)
  Receive Date: 20101216
  Receipt Date: 20100722
  Transmission Date: 20110411
  Serious: No
  Sender: FDA-Public Use
  Company Number: A0871871A

PATIENT
  Age: 26 Year
  Sex: Female

DRUGS (1)
  1. NICOTINE POLACRILEX [Suspect]
     Dates: start: 20100706

REACTIONS (4)
  - COUGH [None]
  - DYSPHONIA [None]
  - OROPHARYNGEAL PAIN [None]
  - SALIVARY HYPERSECRETION [None]
